FAERS Safety Report 20125903 (Version 1)
Quarter: 2021Q4

REPORT INFORMATION
  Report Type: Spontaneous
  Country: CZ (occurrence: CZ)
  Receive Date: 20211129
  Receipt Date: 20211129
  Transmission Date: 20220303
  Serious: Yes (Hospitalization)
  Sender: FDA-Public Use
  Company Number: CZ-MYLANLABS-2021M1087566

PATIENT
  Sex: Male

DRUGS (5)
  1. BISOPROLOL [Suspect]
     Active Substance: BISOPROLOL
     Indication: Angina pectoris
     Dosage: 10 MILLIGRAM, QD
     Route: 065
     Dates: start: 2016
  2. MOLSIDOMINE [Suspect]
     Active Substance: MOLSIDOMINE
     Indication: Angina pectoris
     Dosage: UNK
     Route: 065
  3. TRIMETAZIDINE [Suspect]
     Active Substance: TRIMETAZIDINE
     Indication: Angina pectoris
     Dosage: UNK
     Route: 065
  4. BUPIVACAINE [Suspect]
     Active Substance: BUPIVACAINE
     Indication: Angina pectoris
     Dosage: 6 ML OF 0.5%
     Route: 065
     Dates: start: 20181012
  5. AMIODARONE [Concomitant]
     Active Substance: AMIODARONE
     Indication: Atrial fibrillation
     Dosage: UNK
     Route: 065

REACTIONS (1)
  - Drug ineffective [Unknown]
